FAERS Safety Report 25024979 (Version 1)
Quarter: 2025Q1

REPORT INFORMATION
  Report Type: Spontaneous
  Country: US (occurrence: None)
  Receive Date: 20250228
  Receipt Date: 20250228
  Transmission Date: 20250408
  Serious: Yes (Other)
  Sender: FDA-CTU
  Company Number: None

PATIENT
  Age: 64 Year
  Sex: Female

DRUGS (2)
  1. NARCAN [Suspect]
     Active Substance: NALOXONE HYDROCHLORIDE
     Indication: Product used for unknown indication
     Route: 048
     Dates: start: 20250207, end: 20250207
  2. FENTANYL [Suspect]
     Active Substance: FENTANYL

REACTIONS (5)
  - Heart rate decreased [None]
  - Paralysis [None]
  - Nonspecific reaction [None]
  - Skin discolouration [None]
  - Product complaint [None]

NARRATIVE: CASE EVENT DATE: 20250207
